FAERS Safety Report 6433489-7 (Version None)
Quarter: 2009Q4

REPORT INFORMATION
  Report Type: 
  Country: None (occurrence: None)
  Receive Date: 20091106
  Receipt Date: 20091106
  Transmission Date: 20100525
  Serious: Yes (Life-Threatening)
  Sender: FDA-Public Use
  Company Number: None

PATIENT
  Sex: Female
  Weight: 59 kg

DRUGS (4)
  1. RITUXAN [Suspect]
     Indication: SYSTEMIC LUPUS ERYTHEMATOSUS
     Dosage: 1000 MG ONE TIME ONLY IV
     Route: 042
     Dates: start: 20090729, end: 20090729
  2. CELLCEPT [Concomitant]
  3. PLAQUENIL [Concomitant]
  4. ASPIRIN [Concomitant]

REACTIONS (5)
  - CARDIO-RESPIRATORY ARREST [None]
  - CYANOSIS [None]
  - EYE ROLLING [None]
  - HYPOAESTHESIA [None]
  - UNRESPONSIVE TO STIMULI [None]
